FAERS Safety Report 5146271-8 (Version None)
Quarter: 2006Q4

REPORT INFORMATION
  Report Type: 
  Country: None (occurrence: None)
  Receive Date: 20061102
  Receipt Date: 20061019
  Transmission Date: 20070319
  Serious: Yes (Hospitalization)
  Sender: FDA-Public Use
  Company Number: 2006128794

PATIENT
  Age: 74 Year
  Sex: Female

DRUGS (1)
  1. ALDACTONE [Suspect]
     Indication: ESSENTIAL HYPERTENSION
     Dosage: 25 MG (25 MG, 1 IN 1 D), ORAL
     Route: 048
     Dates: start: 20060616, end: 20060715

REACTIONS (2)
  - ERYSIPELAS [None]
  - LEUKOCYTOCLASTIC VASCULITIS [None]
